FAERS Safety Report 4941241-4 (Version None)
Quarter: 2006Q1

REPORT INFORMATION
  Report Type: 
  Country: None (occurrence: None)
  Receive Date: 20060310
  Receipt Date: 20060310
  Transmission Date: 20060701
  Serious: Yes (Disabling)
  Sender: FDA-Public Use
  Company Number: None

PATIENT
  Age: 48 Year
  Sex: Male
  Weight: 123.3784 kg

DRUGS (1)
  1. RISPERDAL [Suspect]
     Indication: BIPOLAR II DISORDER
     Dates: start: 20060219, end: 20060304

REACTIONS (6)
  - AGGRESSION [None]
  - BLOOD GLUCOSE INCREASED [None]
  - DYSARTHRIA [None]
  - TREMOR [None]
  - VISION BLURRED [None]
  - VOMITING [None]
